FAERS Safety Report 24143006 (Version 1)
Quarter: 2024Q3

REPORT INFORMATION
  Report Type: Spontaneous
  Country: US (occurrence: None)
  Receive Date: 20240726
  Receipt Date: 20240726
  Transmission Date: 20241017
  Serious: Yes (Other)
  Sender: Public
  Company Number: None

PATIENT
  Age: 72 Year
  Sex: Female
  Weight: 62.1 kg

DRUGS (1)
  1. PILOCARPINE [Suspect]
     Active Substance: PILOCARPINE
     Indication: Dry mouth
     Dosage: 1 TABLET AT BEDTIME ORAL?
     Route: 048
     Dates: start: 20240723, end: 20240725

REACTIONS (2)
  - Insomnia [None]
  - Nightmare [None]

NARRATIVE: CASE EVENT DATE: 20240725
